FAERS Safety Report 25861252 (Version 1)
Quarter: 2025Q3

REPORT INFORMATION
  Report Type: Spontaneous
  Country: EU (occurrence: EU)
  Receive Date: 20250929
  Receipt Date: 20250929
  Transmission Date: 20251020
  Serious: Yes (Hospitalization)
  Sender: MERCK SHARP & DOHME LLC
  Company Number: EU-009507513-2334174

PATIENT
  Age: 38 Year
  Sex: Female

DRUGS (1)
  1. KEYTRUDA [Suspect]
     Active Substance: PEMBROLIZUMAB
     Indication: Triple negative breast cancer
     Dates: end: 20250522

REACTIONS (4)
  - Immune-mediated renal disorder [Unknown]
  - Lung disorder [Unknown]
  - Cardiomyopathy [Unknown]
  - Pyrexia [Unknown]

NARRATIVE: CASE EVENT DATE: 20250522
